FAERS Safety Report 10651598 (Version 1)
Quarter: 2014Q4

REPORT INFORMATION
  Report Type: Spontaneous
  Country: NL (occurrence: None)
  Receive Date: 20141211
  Receipt Date: 20141211
  Transmission Date: 20150529
  Serious: Yes (Death, Other)
  Sender: FDA-Public Use
  Company Number: BD-2014-0149

PATIENT
  Age: 33 Year
  Sex: Male

DRUGS (3)
  1. FENTANYL (FENTANYL) [Suspect]
     Active Substance: FENTANYL
     Indication: PRODUCT USED FOR UNKNOWN INDICATION
  2. MORPHINE SULFATE (MORPHINE SULFATE) UNKNOWN [Suspect]
     Active Substance: MORPHINE SULFATE
     Indication: PRODUCT USED FOR UNKNOWN INDICATION
  3. PAINKILLERS [Concomitant]
     Active Substance: UNSPECIFIED INGREDIENT

REACTIONS (12)
  - Cardiac hypertrophy [None]
  - Poisoning [None]
  - Pallor [None]
  - Skin lesion [None]
  - Myositis [None]
  - Muscle swelling [None]
  - Heart injury [None]
  - Pulmonary oedema [None]
  - Pyomyositis [None]
  - Myalgia [None]
  - Muscle necrosis [None]
  - Dilatation ventricular [None]
